FAERS Safety Report 7133460-6 (Version None)
Quarter: 2010Q4

REPORT INFORMATION
  Report Type: 
  Country: None (occurrence: None)
  Receive Date: 20101202
  Receipt Date: 20101124
  Transmission Date: 20110411
  Serious: Yes (Other)
  Sender: FDA-Public Use
  Company Number: US-GILEAD-2010-0033804

PATIENT
  Age: 22 Year
  Sex: Female

DRUGS (4)
  1. VIREAD [Suspect]
     Indication: HIV INFECTION
     Route: 048
     Dates: end: 20100923
  2. EPZICOM [Concomitant]
     Indication: HIV INFECTION
     Route: 048
     Dates: end: 20100923
  3. REYATAZ [Concomitant]
     Indication: HIV INFECTION
     Route: 048
     Dates: end: 20100923
  4. NORVIR [Concomitant]
     Indication: HIV INFECTION

REACTIONS (1)
  - ABORTION SPONTANEOUS [None]
